FAERS Safety Report 23161878 (Version 2)
Quarter: 2023Q4

REPORT INFORMATION
  Report Type: Report from Study
  Country: DE (occurrence: DE)
  Receive Date: 20231109
  Receipt Date: 20231113
  Transmission Date: 20240110
  Serious: Yes (Other)
  Sender: FDA-Public Use
  Company Number: DE-JNJFOC-20231110074

PATIENT

DRUGS (1)
  1. DARATUMUMAB [Suspect]
     Active Substance: DARATUMUMAB
     Indication: Plasma cell myeloma
     Route: 065

REACTIONS (1)
  - Neurotoxicity [Not Recovered/Not Resolved]
